FAERS Safety Report 7243989-8 (Version None)
Quarter: 2011Q1

REPORT INFORMATION
  Report Type: 
  Country: None (occurrence: None)
  Receive Date: 20110125
  Receipt Date: 20110112
  Transmission Date: 20110831
  Serious: Yes (Hospitalization)
  Sender: FDA-Public Use
  Company Number: US-CELGENEUS-163-21880-11011162

PATIENT
  Age: 77 Year
  Sex: Male
  Weight: 96.248 kg

DRUGS (1)
  1. REVLIMID [Suspect]
     Indication: MULTIPLE MYELOMA
     Route: 048

REACTIONS (3)
  - PANCYTOPENIA [None]
  - RENAL FAILURE CHRONIC [None]
  - MULTIPLE MYELOMA [None]
